FAERS Safety Report 21237881 (Version 2)
Quarter: 2022Q3

REPORT INFORMATION
  Report Type: Spontaneous
  Country: US (occurrence: US)
  Receive Date: 20220822
  Receipt Date: 20220825
  Transmission Date: 20221027
  Serious: No
  Sender: FDA-Public Use
  Company Number: US-PFIZER INC-202201069784

PATIENT
  Age: 87 Year
  Sex: Male
  Weight: 81.19 kg

DRUGS (1)
  1. VYNDAMAX [Suspect]
     Active Substance: TAFAMIDIS
     Indication: Amyloidosis
     Dosage: 61 MG
     Route: 048
     Dates: end: 2022

REACTIONS (2)
  - Malaise [Unknown]
  - Off label use [Unknown]
